FAERS Safety Report 7334565-7 (Version None)
Quarter: 2011Q1

REPORT INFORMATION
  Report Type: 
  Country: None (occurrence: None)
  Receive Date: 20110307
  Receipt Date: 20100712
  Transmission Date: 20110831
  Serious: No
  Sender: FDA-Public Use
  Company Number: A0869732A

PATIENT
  Age: 74 Year
  Sex: Female

DRUGS (5)
  1. ASPIRIN [Concomitant]
  2. AZILECT [Concomitant]
  3. REQUIP [Suspect]
     Indication: PARKINSON'S DISEASE
     Dosage: 20MG PER DAY
     Route: 048
     Dates: start: 20100501
  4. MULTI-VITAMIN [Concomitant]
  5. LEVOTHYROXINE SODIUM [Concomitant]

REACTIONS (4)
  - MALAISE [None]
  - FEELING ABNORMAL [None]
  - DISABILITY [None]
  - DRUG INEFFECTIVE [None]
